FAERS Safety Report 7589695-1 (Version None)
Quarter: 2011Q3

REPORT INFORMATION
  Report Type: 
  Country: None (occurrence: None)
  Receive Date: 20110705
  Receipt Date: 20110622
  Transmission Date: 20111222
  Serious: Yes (Hospitalization)
  Sender: FDA-Public Use
  Company Number: US-BAYER-2011-054899

PATIENT
  Age: 29 Year
  Sex: Female

DRUGS (1)
  1. MIRENA [Suspect]
     Indication: CONTRACEPTION
     Dosage: 20 MCG/24HR, ONCE
     Route: 015
     Dates: start: 20110101, end: 20110101

REACTIONS (5)
  - INFLAMMATION [None]
  - SKIN DISCOLOURATION [None]
  - PYREXIA [None]
  - OEDEMA PERIPHERAL [None]
  - THROMBOSIS [None]
